FAERS Safety Report 4280578-1 (Version None)
Quarter: 2004Q1

REPORT INFORMATION
  Report Type: 
  Country: None (occurrence: None)
  Receive Date: 20040127
  Receipt Date: 20040119
  Transmission Date: 20041129
  Serious: Yes (Hospitalization, Other)
  Sender: FDA-Public Use
  Company Number: 2003118174

PATIENT
  Age: 27 Year
  Sex: Female

DRUGS (2)
  1. ZITHROMAX [Suspect]
     Indication: INFECTION PROPHYLAXIS
     Dosage: 250 MG DAILY ORAL
     Route: 048
     Dates: start: 20031110, end: 20031110
  2. PONTAL (MEFENAMIC ACID) [Suspect]
     Indication: PAIN
     Dosage: 250 MG ONCE ORAL
     Route: 048
     Dates: start: 20031110, end: 20031110

REACTIONS (8)
  - ALANINE AMINOTRANSFERASE INCREASED [None]
  - ANAPHYLACTIC SHOCK [None]
  - ASPARTATE AMINOTRANSFERASE INCREASED [None]
  - C-REACTIVE PROTEIN INCREASED [None]
  - DRUG HYPERSENSITIVITY [None]
  - GAMMA-GLUTAMYLTRANSFERASE INCREASED [None]
  - LYMPHOCYTE PERCENTAGE DECREASED [None]
  - NEUTROPHIL PERCENTAGE INCREASED [None]
